FAERS Safety Report 6419392-7 (Version None)
Quarter: 2009Q4

REPORT INFORMATION
  Report Type: 
  Country: None (occurrence: None)
  Receive Date: 20091027
  Receipt Date: 20091012
  Transmission Date: 20100525
  Serious: Yes (Congenital Anomaly, Other)
  Sender: FDA-Public Use
  Company Number: AUR-APL-2009-00902

PATIENT
  Sex: Female

DRUGS (5)
  1. TOPIRAMATE [Suspect]
     Indication: EPILEPSY
     Dosage: 1G/DAY - TRANSPLACENT
     Route: 064
  2. LAMOTRIGINE [Suspect]
     Indication: EPILEPSY
     Dosage: TRANSPLACE
     Route: 064
  3. CLONAZEPAM [Suspect]
     Indication: EPILEPSY
     Dosage: TRANSPLACENTALLY
     Route: 064
  4. OXCARBAZEPINE [Suspect]
     Indication: EPILEPSY
     Dosage: TRANSPLACENTALLY
     Route: 064
  5. FOLIC ACID [Concomitant]

REACTIONS (7)
  - BONE DISORDER [None]
  - CONVULSION [None]
  - DYSMORPHISM [None]
  - LOW SET EARS [None]
  - MATERNAL DRUGS AFFECTING FOETUS [None]
  - MICROTIA [None]
  - RETROGNATHIA [None]
